FAERS Safety Report 19222688 (Version 6)
Quarter: 2022Q3

REPORT INFORMATION
  Report Type: Report from Study
  Country: US (occurrence: US)
  Receive Date: 20210505
  Receipt Date: 20220913
  Transmission Date: 20221027
  Serious: Yes (Hospitalization)
  Sender: FDA-Public Use
  Company Number: US-ABBVIE-21P-163-3881218-00

PATIENT
  Age: 11 Year
  Sex: Male
  Weight: 25 kg

DRUGS (18)
  1. VENETOCLAX [Suspect]
     Active Substance: VENETOCLAX
     Indication: Recurrent cancer
     Dosage: DAYS 1-10 OF 21 DAY CYCLE
     Route: 048
     Dates: start: 20210413, end: 20210413
  2. VENETOCLAX [Suspect]
     Active Substance: VENETOCLAX
     Indication: Refractory cancer
     Dosage: DAYS 1-10 OF 21 DAY CYCLE
     Route: 048
     Dates: start: 20210414, end: 20210422
  3. VENETOCLAX [Suspect]
     Active Substance: VENETOCLAX
     Dosage: DAYS 1-10 OF 21 DAY CYCLE
     Route: 048
     Dates: start: 20210524, end: 20211118
  4. CYCLOPHOSPHAMIDE [Suspect]
     Active Substance: CYCLOPHOSPHAMIDE
     Indication: Recurrent cancer
     Dosage: MAXIMUM OF 4 DAYS EVERY 21 DAYS
     Route: 042
     Dates: start: 20210415, end: 20210419
  5. CYCLOPHOSPHAMIDE [Suspect]
     Active Substance: CYCLOPHOSPHAMIDE
     Indication: Refractory cancer
     Dosage: MAXIMUM OF 4 DAYS EVERY 21 DAYS
     Route: 042
     Dates: start: 20210524, end: 20210527
  6. CYCLOPHOSPHAMIDE [Suspect]
     Active Substance: CYCLOPHOSPHAMIDE
     Dosage: MAXIMUM OF 4 DAYS EVERY 21 DAYS
     Route: 042
     Dates: start: 20210621, end: 20211112
  7. TOPOTECAN HYDROCHLORIDE [Suspect]
     Active Substance: TOPOTECAN HYDROCHLORIDE
     Indication: Recurrent cancer
     Dosage: MAXIMUM OF 4 DAYS EVERY 21 DAYS
     Route: 042
     Dates: start: 20210415, end: 20210419
  8. TOPOTECAN HYDROCHLORIDE [Suspect]
     Active Substance: TOPOTECAN HYDROCHLORIDE
     Indication: Refractory cancer
     Dosage: MAXIMUM OF 4 DAYS EVERY 21 DAYS
     Route: 042
     Dates: start: 20210524, end: 20210527
  9. TOPOTECAN HYDROCHLORIDE [Suspect]
     Active Substance: TOPOTECAN HYDROCHLORIDE
     Dosage: MAXIMUM OF 4 DAYS EVERY 21 DAYS
     Route: 042
     Dates: start: 20210621, end: 20211112
  10. ZOFRAN [Concomitant]
     Active Substance: ONDANSETRON HYDROCHLORIDE
     Indication: Nausea
     Route: 048
     Dates: start: 20210413
  11. SCOPOLAMINE [Concomitant]
     Active Substance: SCOPOLAMINE
     Indication: Nausea
     Route: 058
     Dates: start: 20210413
  12. BENADRYL [Concomitant]
     Active Substance: DIPHENHYDRAMINE HYDROCHLORIDE
     Indication: Nausea
     Route: 048
     Dates: start: 20210413
  13. BENADRYL [Concomitant]
     Active Substance: DIPHENHYDRAMINE HYDROCHLORIDE
     Indication: Rash
  14. SODIUM CHLORIDE [Concomitant]
     Active Substance: SODIUM CHLORIDE
     Indication: Dehydration
     Route: 042
     Dates: start: 20210415
  15. ALLOPURINOL [Concomitant]
     Active Substance: ALLOPURINOL
     Indication: Prophylaxis
     Dates: start: 20210420, end: 20210506
  16. DEXTROSE\WATER [Concomitant]
     Active Substance: DEXTROSE\WATER
     Indication: Prophylaxis
     Dates: start: 20210415, end: 20210416
  17. TYLENOL [Concomitant]
     Active Substance: ACETAMINOPHEN
     Indication: Red blood cell transfusion
     Route: 048
     Dates: start: 20210417
  18. TYLENOL [Concomitant]
     Active Substance: ACETAMINOPHEN
     Indication: Premedication

REACTIONS (6)
  - Anaemia [Not Recovered/Not Resolved]
  - Platelet count decreased [Not Recovered/Not Resolved]
  - White blood cell count decreased [Not Recovered/Not Resolved]
  - Stomatitis [Not Recovered/Not Resolved]
  - Sepsis [Recovered/Resolved]
  - Neutrophil count decreased [Recovered/Resolved]

NARRATIVE: CASE EVENT DATE: 20210416
